FAERS Safety Report 21683688 (Version 1)
Quarter: 2022Q4

REPORT INFORMATION
  Report Type: Report from Study
  Country: US (occurrence: US)
  Receive Date: 20221205
  Receipt Date: 20221205
  Transmission Date: 20230113
  Serious: Yes (Other)
  Sender: FDA-Public Use
  Company Number: US-BRISTOL-MYERS SQUIBB COMPANY-2022-087598

PATIENT
  Age: 84 Year
  Sex: Female
  Weight: 72.8 kg

DRUGS (2)
  1. REVLIMID [Suspect]
     Active Substance: LENALIDOMIDE
     Indication: Plasma cell myeloma
     Route: 048
     Dates: start: 20160513
  2. REVLIMID [Suspect]
     Active Substance: LENALIDOMIDE
     Indication: Plasma cell myeloma in remission

REACTIONS (10)
  - Diarrhoea [Recovered/Resolved]
  - Malaise [Unknown]
  - Back pain [Unknown]
  - Dehydration [Unknown]
  - Infection [Unknown]
  - Thrombosis [Unknown]
  - Memory impairment [Unknown]
  - Arthropathy [Unknown]
  - Tooth disorder [Unknown]
  - Nausea [Recovered/Resolved]
